FAERS Safety Report 19167692 (Version 1)
Quarter: 2021Q2

REPORT INFORMATION
  Report Type: Spontaneous
  Country: US (occurrence: US)
  Receive Date: 20210422
  Receipt Date: 20210422
  Transmission Date: 20210717
  Serious: No
  Sender: FDA-Public Use
  Company Number: US-SA-2021SA128397

PATIENT
  Age: 57 Year
  Sex: Female

DRUGS (4)
  1. COVID?19 VACCINE NOS. [Suspect]
     Active Substance: COVID-19 VACCINE NOS
  2. ESTRADIOL. [Concomitant]
     Active Substance: ESTRADIOL
  3. DUPIXENT [Suspect]
     Active Substance: DUPILUMAB
     Indication: ECZEMA
     Route: 058
     Dates: start: 20190823
  4. LEVOTHYROXIN [Concomitant]
     Active Substance: LEVOTHYROXINE

REACTIONS (2)
  - Illness [Unknown]
  - Abdominoplasty [Unknown]

NARRATIVE: CASE EVENT DATE: 20210413
